FAERS Safety Report 8984142 (Version 2)
Quarter: 2013Q2

REPORT INFORMATION
  Report Type: Spontaneous
  Country: US (occurrence: None)
  Receive Date: 20120508
  Receipt Date: 20120709
  Transmission Date: 20140414
  Serious: No
  Sender: FDA-Public Use
  Company Number: 2012HGS-003332

PATIENT
  Age: 47 Year
  Sex: Female
  Weight: 117.94 kg

DRUGS (13)
  1. BENLYSTA [Suspect]
     Indication: SYSTEMIC LUPUS ERYTHEMATOSUS
     Dosage: 1 IN 1 M
     Route: 041
     Dates: start: 20120223
  2. PLAQUENIL(HYDROXYCHLOROQUINE PHOSPHATE) (HYDROXYCHLOROQUINE PHOSPHATE) [Concomitant]
  3. IMURAN(AZATHIOPRINE)(AZATHIOPRINE) [Concomitant]
  4. CLONIDINE (CLONIDINE) (CLONIDINE) [Concomitant]
  5. LOSARTAN (LOSARTAN) (LOSARTAN) [Concomitant]
  6. THERA TAB(VIGRAN)(ERGOCALCIFEROL, ASCORBIC ACID, PYRIDOXINE HYDROCHLORIDE, THIAMINE HYDROCHLORIDE, RETINOL, RIBOFLAVIN, NICOTINAMIDE, CALCIUM PANTOTHENATE) [Concomitant]
  7. AMLODIPINE(AMLODIPINE)(AMLODIPINE) [Concomitant]
  8. LASIX(FUROSEMIDE)(FUROSEMIDE) [Concomitant]
  9. SYNTHROID(LEVOTHYROXINE SODIUM)(LEVOTHYROXINE SODIUM) [Concomitant]
  10. NIFEDIPINE (NIFEDIPINE) (NIFEDIPINE) [Concomitant]
  11. HYDROCODON APAP (VICODIN)(PARACETAMOL, HYDROCODONE BITARTRATE) [Concomitant]
  12. CALCIUM (CALCIUM) (CALCIUM) [Concomitant]
  13. PROVENTIL (SALBUTAMOL)(SALBUTAMOL) [Concomitant]

REACTIONS (7)
  - Paraesthesia oral [None]
  - Skin exfoliation [None]
  - Lip swelling [None]
  - Pruritus generalised [None]
  - Urticaria [None]
  - Swelling face [None]
  - Urticaria [None]
